FAERS Safety Report 11364146 (Version 2)
Quarter: 2019Q3

REPORT INFORMATION
  Report Type: Spontaneous
  Country: JP (occurrence: JP)
  Receive Date: 20150811
  Receipt Date: 20190820
  Transmission Date: 20191004
  Serious: Yes (Other)
  Sender: FDA-Public Use
  Company Number: JP-PFIZER INC-2015253788

PATIENT
  Age: 46 Year
  Sex: Female

DRUGS (5)
  1. DOCETAXEL. [Suspect]
     Active Substance: DOCETAXEL
     Indication: BREAST CANCER
     Dosage: 75 MG/M2, CYCLIC: 4 COURSES
  2. CYCLOPHOSPHAMIDE. [Suspect]
     Active Substance: CYCLOPHOSPHAMIDE
     Indication: BREAST CANCER
     Dosage: 600 MG/M2, CYCLIC
  3. PACLITAXEL. [Suspect]
     Active Substance: PACLITAXEL
     Indication: ADJUVANT THERAPY
     Dosage: UNK, WEEKLY
     Route: 065
  4. CAPECITABINE. [Suspect]
     Active Substance: CAPECITABINE
     Indication: ADJUVANT THERAPY
     Dosage: UNK
     Route: 048
  5. EPIRUBICIN HCL [Suspect]
     Active Substance: EPIRUBICIN HYDROCHLORIDE
     Indication: BREAST CANCER
     Dosage: 100 MG/M2, CYCLIC
     Route: 042

REACTIONS (2)
  - Acute leukaemia [Unknown]
  - Second primary malignancy [Unknown]
